FAERS Safety Report 8130599 (Version 3)
Quarter: 2013Q4

REPORT INFORMATION
  Report Type: Spontaneous
  Country: US (occurrence: US)
  Receive Date: 20110912
  Receipt Date: 20131128
  Transmission Date: 20140711
  Serious: Yes (Hospitalization)
  Sender: FDA-Public Use
  Company Number: US-ASTRAZENECA-2011SE53423

PATIENT
  Age: 84 Year
  Sex: Female
  Weight: 69.4 kg

DRUGS (6)
  1. SYMBICORT PMDI [Suspect]
     Dosage: 160/4.5 2 PUFFS BID
     Route: 055
  2. SYMBICORT PMDI [Suspect]
     Dosage: 160/4.5 ONE INHALATIONS BID
     Route: 055
  3. ALBUTEROL NEBULIZER [Concomitant]
     Indication: INHALATION THERAPY
  4. ALPRAZOLAM [Concomitant]
     Indication: SLEEP DISORDER
     Route: 048
     Dates: start: 2010
  5. LOSARTAN [Concomitant]
     Indication: HYPERTENSION
     Route: 048
  6. PANTAPROZOLE [Concomitant]
     Indication: GASTROOESOPHAGEAL REFLUX DISEASE
     Route: 048

REACTIONS (6)
  - Cholelithiasis [Unknown]
  - Pneumonia [Unknown]
  - Fall [Unknown]
  - Back injury [Unknown]
  - Intentional drug misuse [Unknown]
  - Circumstance or information capable of leading to medication error [Unknown]
